FAERS Safety Report 9060931 (Version 2)
Quarter: 2014Q2

REPORT INFORMATION
  Report Type: Report from Study
  Country: NL (occurrence: NL)
  Receive Date: 20130212
  Receipt Date: 20140501
  Transmission Date: 20141212
  Serious: Yes (Other)
  Sender: FDA-Public Use
  Company Number: PHHY2013NL001327

PATIENT
  Sex: Male

DRUGS (4)
  1. TOBI [Suspect]
     Indication: CHRONIC OBSTRUCTIVE PULMONARY DISEASE
     Dosage: UNK UKN, UNK
     Route: 055
  2. FLUIMUCIL [Concomitant]
     Dosage: UNK UKN, UNK
  3. SALBUTAMOL [Concomitant]
     Dosage: UNK UKN, UNK
  4. SALT [Concomitant]
     Dosage: UNK UKN, UNK

REACTIONS (1)
  - Haemorrhage [Unknown]
